FAERS Safety Report 25746665 (Version 2)
Quarter: 2025Q3

REPORT INFORMATION
  Report Type: Spontaneous
  Country: CA (occurrence: CA)
  Receive Date: 20250901
  Receipt Date: 20250915
  Transmission Date: 20251021
  Serious: Yes (Life-Threatening, Other)
  Sender: TEVA
  Company Number: CA-TEVA-VS-3366872

PATIENT
  Age: 20 Year
  Sex: Male

DRUGS (13)
  1. OLANZAPINE [Interacting]
     Active Substance: OLANZAPINE
     Indication: Schizoaffective disorder
     Route: 065
  2. CLONAZEPAM [Concomitant]
     Active Substance: CLONAZEPAM
     Indication: Schizoaffective disorder
     Route: 065
  3. TRAZODONE [Concomitant]
     Active Substance: TRAZODONE HYDROCHLORIDE
     Indication: Schizoaffective disorder
     Route: 065
  4. METFORMIN [Concomitant]
     Active Substance: METFORMIN HYDROCHLORIDE
     Indication: Product used for unknown indication
     Route: 065
  5. BENZTROPINE [Concomitant]
     Active Substance: BENZTROPINE
     Indication: Schizoaffective disorder
     Route: 065
  6. ESCITALOPRAM [Concomitant]
     Active Substance: ESCITALOPRAM OXALATE
     Indication: Attention deficit hyperactivity disorder
     Route: 065
  7. ACAMPROSATE [Concomitant]
     Active Substance: ACAMPROSATE
     Indication: Product used for unknown indication
     Route: 065
  8. MELATONIN [Concomitant]
     Active Substance: MELATONIN
     Indication: Schizoaffective disorder
     Route: 065
  9. CLOZAPINE [Interacting]
     Active Substance: CLOZAPINE
     Indication: Schizoaffective disorder
     Route: 065
  10. CLOZAPINE [Interacting]
     Active Substance: CLOZAPINE
     Indication: Schizoaffective disorder
     Route: 065
  11. CLOZAPINE [Interacting]
     Active Substance: CLOZAPINE
     Indication: Schizoaffective disorder
     Dosage: DOSE TITRATED-UP
     Route: 065
  12. PALIPERIDONE [Concomitant]
     Active Substance: PALIPERIDONE
     Indication: Schizoaffective disorder
     Route: 065
  13. LAMOTRIGINE [Concomitant]
     Active Substance: LAMOTRIGINE
     Indication: Schizoaffective disorder
     Route: 065

REACTIONS (5)
  - Myocarditis [Recovered/Resolved]
  - Tachycardia [Unknown]
  - Salivary hypersecretion [Unknown]
  - Drug interaction [Unknown]
  - Sedation [Unknown]
